FAERS Safety Report 17590580 (Version 1)
Quarter: 2020Q1

REPORT INFORMATION
  Report Type: Spontaneous
  Country: US (occurrence: US)
  Receive Date: 20200327
  Receipt Date: 20200327
  Transmission Date: 20200409
  Serious: Yes (Other)
  Sender: FDA-Public Use
  Company Number: NVSC2020US080577

PATIENT
  Sex: Female

DRUGS (18)
  1. IBRANCE [Suspect]
     Active Substance: PALBOCICLIB
     Dosage: UNK
     Route: 048
     Dates: start: 20191122
  2. IBRANCE [Suspect]
     Active Substance: PALBOCICLIB
     Dosage: 1 DF, QD 1 DF, QD FOR 21 DOSEA. TAKE ON DAYS 1 THRROUGH 21 (FOLLOWED BY 7 DAYS OFF TREAMTNET ) WITH
     Route: 048
     Dates: start: 20200226, end: 20200318
  3. ZOMETA [Suspect]
     Active Substance: ZOLEDRONIC ACID
     Indication: BREAST CANCER
     Dosage: UNK
     Route: 048
     Dates: start: 20190916
  4. ZOMETA [Suspect]
     Active Substance: ZOLEDRONIC ACID
     Dosage: UNK
     Route: 048
     Dates: start: 20191022
  5. IBRANCE [Suspect]
     Active Substance: PALBOCICLIB
     Indication: BREAST CANCER
     Dosage: 125 MG
     Route: 048
     Dates: start: 20190913
  6. IBRANCE [Suspect]
     Active Substance: PALBOCICLIB
     Dosage: UNK
     Route: 048
     Dates: start: 20200124
  7. VITAMIN D [Concomitant]
     Active Substance: VITAMIN D NOS
     Indication: PRODUCT USED FOR UNKNOWN INDICATION
     Route: 065
  8. FULVESTRANT. [Concomitant]
     Active Substance: FULVESTRANT
     Indication: PRODUCT USED FOR UNKNOWN INDICATION
     Dosage: UNK
     Route: 048
     Dates: start: 20190913
  9. FULVESTRANT. [Concomitant]
     Active Substance: FULVESTRANT
     Dosage: UNK
     Route: 048
     Dates: start: 20200124
  10. IBRANCE [Suspect]
     Active Substance: PALBOCICLIB
     Dosage: UNK
     Route: 048
     Dates: start: 20191025
  11. FULVESTRANT. [Concomitant]
     Active Substance: FULVESTRANT
     Dosage: UNK
     Route: 048
     Dates: start: 20200220
  12. ZOMETA [Suspect]
     Active Substance: ZOLEDRONIC ACID
     Dosage: (ONCE EVERY THREE MONTH)
     Route: 065
     Dates: start: 20200220
  13. IBRANCE [Suspect]
     Active Substance: PALBOCICLIB
     Dosage: 1 DF, QD FOR 21 DOSEA. TAKE ON DAYS 1 THRROUGH 21 (FOLLOWED BY 7 DAYS OFF TREAMTNET ) WITH FOOD FOOD
     Route: 048
     Dates: start: 20191227
  14. ZOMETA [Suspect]
     Active Substance: ZOLEDRONIC ACID
     Dosage: UNK
     Route: 048
     Dates: start: 20191122
  15. IBRANCE [Suspect]
     Active Substance: PALBOCICLIB
     Dosage: UNK
     Route: 048
     Dates: start: 20200220
  16. FULVESTRANT. [Concomitant]
     Active Substance: FULVESTRANT
     Dosage: UNK
     Route: 048
     Dates: start: 20191025
  17. FULVESTRANT. [Concomitant]
     Active Substance: FULVESTRANT
     Dosage: UNK
     Route: 048
     Dates: start: 20191227
  18. FULVESTRANT. [Concomitant]
     Active Substance: FULVESTRANT
     Dosage: UNK
     Route: 048
     Dates: start: 20191122

REACTIONS (29)
  - Metastases to bone [Unknown]
  - Balance disorder [Unknown]
  - Hot flush [Unknown]
  - Constipation [Recovering/Resolving]
  - Headache [Unknown]
  - Postmenopausal haemorrhage [Unknown]
  - Neutropenia [Unknown]
  - Night sweats [Unknown]
  - Fatigue [Unknown]
  - Depressed mood [Unknown]
  - Joint stiffness [Unknown]
  - Chest pain [Unknown]
  - Breast cancer female [Unknown]
  - Nervousness [Unknown]
  - Osteoarthritis [Unknown]
  - Chest discomfort [Unknown]
  - Dyspnoea [Unknown]
  - Abdominal pain [Unknown]
  - Pain [Unknown]
  - Sleep disorder [Unknown]
  - Sinus congestion [Unknown]
  - Invasive ductal breast carcinoma [Unknown]
  - Anxiety [Unknown]
  - Malignant neoplasm progression [Unknown]
  - Contusion [Unknown]
  - Diarrhoea [Recovering/Resolving]
  - White blood cell count decreased [Unknown]
  - Cervical dysplasia [Unknown]
  - Arthralgia [Unknown]

NARRATIVE: CASE EVENT DATE: 20200220
